FAERS Safety Report 4292449-5 (Version None)
Quarter: 2004Q1

REPORT INFORMATION
  Report Type: 
  Country: None (occurrence: None)
  Receive Date: 20040211
  Receipt Date: 20040211
  Transmission Date: 20041129
  Serious: Yes (Hospitalization)
  Sender: FDA-Public Use
  Company Number: None

PATIENT
  Sex: Male
  Weight: 64.8644 kg

DRUGS (5)
  1. TAXOL [Suspect]
     Indication: LUNG NEOPLASM MALIGNANT
     Dosage: 350 MG IV Q 4 WK
     Route: 042
     Dates: start: 20031223, end: 20040113
  2. CARBOPLATIN [Suspect]
     Indication: LUNG NEOPLASM MALIGNANT
     Dosage: 400 MG IV Q 4 WK
     Route: 042
     Dates: start: 20031223, end: 20040113
  3. ANZEMET [Concomitant]
  4. BENEDRYL [Concomitant]
  5. CIMETIDINE HCL [Concomitant]

REACTIONS (4)
  - ATRIAL FIBRILLATION [None]
  - DIZZINESS [None]
  - FALL [None]
  - PALPITATIONS [None]
